FAERS Safety Report 13355735 (Version 1)
Quarter: 2017Q1

REPORT INFORMATION
  Report Type: Spontaneous
  Country: ZA (occurrence: ZA)
  Receive Date: 20170321
  Receipt Date: 20170321
  Transmission Date: 20170429
  Serious: Yes (Other)
  Sender: FDA-Public Use
  Company Number: ZA-JNJFOC-20170317271

PATIENT

DRUGS (1)
  1. METHYLPHENIDATE HYDROCHLORIDE. [Suspect]
     Active Substance: METHYLPHENIDATE HYDROCHLORIDE
     Indication: ATTENTION DEFICIT/HYPERACTIVITY DISORDER
     Route: 065

REACTIONS (9)
  - Intentional product misuse [Unknown]
  - Palpitations [Unknown]
  - Dizziness [Unknown]
  - Erectile dysfunction [Unknown]
  - Nervousness [Unknown]
  - Amnesia [Unknown]
  - Arrhythmia [Unknown]
  - Somnolence [Unknown]
  - Wrong technique in product usage process [Unknown]
